FAERS Safety Report 7401717-7 (Version None)
Quarter: 2011Q1

REPORT INFORMATION
  Report Type: 
  Country: None (occurrence: None)
  Receive Date: 20110329
  Receipt Date: 20110314
  Transmission Date: 20110831
  Serious: Yes (Hospitalization)
  Sender: FDA-Public Use
  Company Number: 09-002001

PATIENT
  Age: 27 Year
  Sex: Female

DRUGS (8)
  1. ENBREL [Concomitant]
  2. TACLONEX [Suspect]
     Indication: PSORIASIS
     Dosage: }60G  PER DAY,TOPICAL
     Route: 061
  3. APROVEL (IRBESARTAN) [Concomitant]
  4. NOVATREX (METHOTREXATE) [Concomitant]
  5. LEFLUNOMIDE [Concomitant]
  6. DAFLON (HESPERIDIN, DIOSMIN, BIOFLAVONOIDS) [Concomitant]
  7. TENORMIN [Concomitant]
  8. ACITRETIN [Concomitant]

REACTIONS (9)
  - ADRENAL INSUFFICIENCY [None]
  - CUSHING'S SYNDROME [None]
  - DRUG EXPOSURE DURING PREGNANCY [None]
  - SKIN STRIAE [None]
  - HYPERADRENOCORTICISM [None]
  - HYPOTHALAMO-PITUITARY DISORDER [None]
  - ERYTHRODERMIC PSORIASIS [None]
  - OVERDOSE [None]
  - OFF LABEL USE [None]
